FAERS Safety Report 5034260-3 (Version None)
Quarter: 2006Q2

REPORT INFORMATION
  Report Type: 
  Country: None (occurrence: None)
  Receive Date: 20060621
  Receipt Date: 20060608
  Transmission Date: 20061013
  Serious: Yes (Hospitalization)
  Sender: FDA-Public Use
  Company Number: 163-C5013-06060259

PATIENT
  Age: 57 Year
  Sex: Female
  Weight: 71.4 kg

DRUGS (7)
  1. REVLIMID [Suspect]
     Indication: MULTIPLE MYELOMA
     Dosage: 25 MG, DAILY ON DAYS 1-21, ORAL
     Route: 048
     Dates: start: 20060515, end: 20060531
  2. REVLIMID [Suspect]
     Indication: MULTIPLE MYELOMA
     Dosage: 25 MG, DAILY ON DAYS 1-21, ORAL
     Route: 048
     Dates: start: 20060615
  3. DEXAMETHASONE [Suspect]
     Indication: MULTIPLE MYELOMA
     Dosage: 40 MG, DAILY ON DAYS 1-4, 9-12, 17-20, ORAL
     Route: 048
     Dates: start: 20060515, end: 20060531
  4. DEXAMETHASONE [Suspect]
     Indication: MULTIPLE MYELOMA
     Dosage: 40 MG, DAILY ON DAYS 1-4, 9-12, 17-20, ORAL
     Route: 048
     Dates: start: 20060615
  5. MULTIVITAMIN [Concomitant]
  6. PROCRIT [Concomitant]
  7. COUMADIN [Concomitant]

REACTIONS (6)
  - CHILLS [None]
  - HAEMOLYSIS [None]
  - HYPERSPLENISM [None]
  - JAUNDICE [None]
  - MALIGNANT NEOPLASM PROGRESSION [None]
  - MULTIPLE MYELOMA [None]
